FAERS Safety Report 4597182-8 (Version None)
Quarter: 2005Q1

REPORT INFORMATION
  Report Type: 
  Country: None (occurrence: None)
  Receive Date: 20050301
  Receipt Date: 20050125
  Transmission Date: 20050727
  Serious: Yes (Hospitalization)
  Sender: FDA-Public Use
  Company Number: 6012779

PATIENT
  Age: 82 Year
  Sex: Male

DRUGS (8)
  1. BISOPROLOL FUMARATE [Suspect]
     Indication: CARDIAC FAILURE CONGESTIVE
     Dosage: 2,5 MG ORAL
     Route: 048
     Dates: start: 20031108
  2. ENALAPRIL 5 MG TABLETS (ENALAPRIL) [Suspect]
     Indication: CARDIAC FAILURE CONGESTIVE
     Dosage: 10 MG
     Dates: start: 20040116
  3. ACETYLSALICYLIC ACID SRT [Concomitant]
  4. DIGOXIN [Concomitant]
  5. SIMVASTATIN [Concomitant]
  6. AMIODARONE HCL [Concomitant]
  7. TORSEMIDE [Concomitant]
  8. ISOSORBIDE MONONITRATE [Concomitant]

REACTIONS (6)
  - BLOOD CREATININE INCREASED [None]
  - EXTRASYSTOLES [None]
  - HYPOTENSION [None]
  - SINUS BRADYCARDIA [None]
  - VERTIGO [None]
  - VERTIGO POSITIONAL [None]
